FAERS Safety Report 6183000-3 (Version None)
Quarter: 2009Q2

REPORT INFORMATION
  Report Type: 
  Country: None (occurrence: None)
  Receive Date: 20090507
  Receipt Date: 20090507
  Transmission Date: 20091009
  Serious: Yes (Other)
  Sender: FDA-Public Use
  Company Number: US-PFIZER INC-2008034761

PATIENT
  Sex: Female
  Weight: 59 kg

DRUGS (4)
  1. CELEBREX [Suspect]
     Indication: HEADACHE
     Dates: start: 20080413, end: 20080413
  2. METHYLPREDNISOLONE AND METHYLPREDNISOLONE ACETATE AND METHYLPREDNISOLO [Interacting]
     Indication: HYPERSENSITIVITY
     Dates: start: 20080101, end: 20080413
  3. MINOCYCLINE HCL [Interacting]
     Indication: ACNE
     Dates: start: 20080101, end: 20080413
  4. CONTRACEPTIVE, UNSPECIFIED [Concomitant]

REACTIONS (8)
  - ANXIETY [None]
  - DRUG INTERACTION [None]
  - ERYTHEMA [None]
  - GENERALISED ERYTHEMA [None]
  - HYPERSENSITIVITY [None]
  - INCORRECT DOSE ADMINISTERED [None]
  - SCRATCH [None]
  - URTICARIA [None]
